FAERS Safety Report 23858032 (Version 1)
Quarter: 2024Q2

REPORT INFORMATION
  Report Type: Spontaneous
  Country: US (occurrence: US)
  Receive Date: 20240515
  Receipt Date: 20240515
  Transmission Date: 20240716
  Serious: Yes (Hospitalization)
  Sender: FDA-Public Use
  Company Number: US-PRESTIGE-202405-US-001511

PATIENT
  Age: 39 Year
  Sex: Male

DRUGS (4)
  1. BC ARTHRITIS [Suspect]
     Active Substance: ASPIRIN\CAFFEINE
     Indication: Pain
     Dosage: TWICE A DAY FOR 6 MONTHS
     Route: 048
  2. BC ARTHRITIS [Suspect]
     Active Substance: ASPIRIN\CAFFEINE
  3. BC ARTHRITIS [Suspect]
     Active Substance: ASPIRIN\CAFFEINE
  4. BC ARTHRITIS [Suspect]
     Active Substance: ASPIRIN\CAFFEINE

REACTIONS (4)
  - Gastric ulcer haemorrhage [Unknown]
  - Haematochezia [Unknown]
  - Heart rate increased [Unknown]
  - Anaemia [Unknown]
